FAERS Safety Report 5470951-8 (Version None)
Quarter: 2007Q3

REPORT INFORMATION
  Report Type: 
  Country: None (occurrence: None)
  Receive Date: 20070928
  Receipt Date: 20070921
  Transmission Date: 20080115
  Serious: Yes (Other)
  Sender: FDA-Public Use
  Company Number: JP-MERCK-0709USA04330

PATIENT
  Age: 7 Year
  Sex: Male

DRUGS (4)
  1. SINGULAIR [Suspect]
     Indication: ASTHMA
     Route: 048
     Dates: start: 20061215
  2. HOKUNALIN [Concomitant]
     Indication: ASTHMA
     Route: 061
     Dates: start: 20061113
  3. THEO-DUR [Concomitant]
     Indication: ASTHMA
     Route: 048
     Dates: start: 20061201
  4. ALEGYSAL [Concomitant]
     Indication: ASTHMA
     Route: 048

REACTIONS (1)
  - ORAL MUCOSAL PETECHIAE [None]
